FAERS Safety Report 9248637 (Version 2)
Quarter: 2013Q2

REPORT INFORMATION
  Report Type: Report from Study
  Country: CA (occurrence: CA)
  Receive Date: 20130423
  Receipt Date: 20130516
  Transmission Date: 20140414
  Serious: Yes (Other)
  Sender: FDA-Public Use
  Company Number: CA-ROCHE-1212732

PATIENT
  Age: 70 Year
  Sex: Female
  Weight: 70.3 kg

DRUGS (12)
  1. RITUXAN [Suspect]
     Indication: RHEUMATOID ARTHRITIS
     Dosage: LAST DOSE PRIOR TO SAE : 14/MAR/2011
     Route: 042
     Dates: start: 20100107
  2. PLAQUENIL [Concomitant]
  3. ELTROXIN [Concomitant]
  4. LISINOPRIL [Concomitant]
  5. INDAPAMIDE [Concomitant]
  6. METHOTREXATE [Concomitant]
  7. FOLIC ACID [Concomitant]
  8. REMICADE [Concomitant]
  9. PREDNISONE [Concomitant]
  10. METHYLPREDNISOLONE [Concomitant]
     Route: 042
     Dates: start: 20100107, end: 20100121
  11. DIPHENHYDRAMINE HCL [Concomitant]
     Route: 048
     Dates: start: 20100121, end: 20100121
  12. ACETAMINOPHEN [Concomitant]
     Route: 065

REACTIONS (7)
  - Osteoarthritis [Recovered/Resolved]
  - Arthropathy [Unknown]
  - Joint swelling [Not Recovered/Not Resolved]
  - Herpes zoster [Recovered/Resolved]
  - Rheumatoid arthritis [Not Recovered/Not Resolved]
  - Rheumatoid arthritis [Not Recovered/Not Resolved]
  - Fatigue [Not Recovered/Not Resolved]
